FAERS Safety Report 4408478-4 (Version None)
Quarter: 2004Q3

REPORT INFORMATION
  Report Type: 
  Country: None (occurrence: None)
  Receive Date: 20040719
  Receipt Date: 20040708
  Transmission Date: 20050211
  Serious: Yes (Hospitalization)
  Sender: FDA-Public Use
  Company Number: ZLBIGIV/04/23/USA

PATIENT
  Age: 69 Year
  Sex: Female
  Weight: 59.4212 kg

DRUGS (7)
  1. CARIMUNE [Suspect]
     Dosage: 24 G, ONCE, I.V.
     Route: 042
     Dates: start: 20040624, end: 20040624
  2. ANTIBIOTICS (ANTIBIOTICS) [Concomitant]
  3. TYLENOL [Concomitant]
  4. AMOXICILLIN [Concomitant]
  5. ADVAIR (FLUTICASONE PROPIONATE) [Concomitant]
  6. ALBUTEROL [Concomitant]
  7. NASACORT AO (TRIAMCINOLONE ACETONIDE) [Concomitant]

REACTIONS (11)
  - BLOOD GLUCOSE INCREASED [None]
  - BODY TEMPERATURE INCREASED [None]
  - CONFUSIONAL STATE [None]
  - DYSPNOEA [None]
  - EPISTAXIS [None]
  - HEADACHE [None]
  - INSOMNIA [None]
  - MARKEDLY REDUCED DIETARY INTAKE [None]
  - PERTUSSIS [None]
  - SINUSITIS [None]
  - UPPER RESPIRATORY TRACT INFECTION [None]
